FAERS Safety Report 12798871 (Version 2)
Quarter: 2016Q4

REPORT INFORMATION
  Report Type: Report from Study
  Country: US (occurrence: US)
  Receive Date: 20160930
  Receipt Date: 20161005
  Transmission Date: 20170207
  Serious: Yes (Other)
  Sender: FDA-Public Use
  Company Number: US-BIOGEN-2016BI00297666

PATIENT
  Sex: Female

DRUGS (1)
  1. TYSABRI [Suspect]
     Active Substance: NATALIZUMAB
     Indication: MULTIPLE SCLEROSIS
     Route: 042
     Dates: start: 20090112, end: 20121204

REACTIONS (14)
  - Portal hypertension [Not Recovered/Not Resolved]
  - Varices oesophageal [Unknown]
  - Liver disorder [Not Recovered/Not Resolved]
  - Dizziness postural [Recovered/Resolved]
  - Pulmonary hypertension [Not Recovered/Not Resolved]
  - Mitral valve incompetence [Not Recovered/Not Resolved]
  - Hypoacusis [Unknown]
  - Blood test abnormal [Not Recovered/Not Resolved]
  - Dyspnoea [Not Recovered/Not Resolved]
  - Heart valve stenosis [Not Recovered/Not Resolved]
  - Cardiac valve disease [Not Recovered/Not Resolved]
  - Pulmonary congestion [Unknown]
  - Autoimmune disorder [Not Recovered/Not Resolved]
  - Antibody test positive [Unknown]

NARRATIVE: CASE EVENT DATE: 2013
